FAERS Safety Report 14424009 (Version 3)
Quarter: 2019Q1

REPORT INFORMATION
  Report Type: Report from Study
  Country: US (occurrence: US)
  Receive Date: 20180123
  Receipt Date: 20190102
  Transmission Date: 20190417
  Serious: Yes (Hospitalization)
  Sender: FDA-Public Use
  Company Number: US-ROCHE-1954139

PATIENT
  Age: 70 Year
  Sex: Male
  Weight: 82 kg

DRUGS (20)
  1. ZOFRAN [Concomitant]
     Active Substance: ONDANSETRON HYDROCHLORIDE
     Indication: VOMITING
  2. K-DUR [Concomitant]
     Active Substance: POTASSIUM CHLORIDE
     Route: 065
     Dates: start: 20170601
  3. ASPIRIN. [Concomitant]
     Active Substance: ASPIRIN
     Route: 048
     Dates: start: 20170601
  4. PROVENTIL [Concomitant]
     Active Substance: ALBUTEROL
     Dosage: 2.5MG/0.5ML
     Route: 065
     Dates: start: 20170519
  5. FUROSEMIDE. [Concomitant]
     Active Substance: FUROSEMIDE
     Route: 065
     Dates: start: 20170504
  6. PROVENTIL HFA [Concomitant]
     Active Substance: ALBUTEROL SULFATE
     Dosage: 90 MCG ACTUATION INHALER, INHALE 1-2 PUFFS AS INSTRUCTED FOUR TIMES DAILY AS NEEDED
     Route: 055
     Dates: start: 20170504
  7. ZYPREXA [Concomitant]
     Active Substance: OLANZAPINE
     Dosage: AT BEDTIME
     Route: 048
     Dates: start: 20170607
  8. ELIQUIS [Concomitant]
     Active Substance: APIXABAN
     Route: 065
     Dates: start: 20170428
  9. VENTOLIN HFA [Concomitant]
     Active Substance: ALBUTEROL SULFATE
     Dosage: PER ACTUATION INHALER, INHALE 1-2 PUFFS AS INSTRUCTED FOUR TIMES DAILY AS NEEDED
     Route: 055
     Dates: start: 20170504
  10. MEGACE [Concomitant]
     Active Substance: MEGESTROL ACETATE
     Dosage: 400 MG/ 10ML
     Route: 048
     Dates: start: 20170607
  11. METOPROLOL TARTRATE. [Concomitant]
     Active Substance: METOPROLOL TARTRATE
     Route: 048
     Dates: start: 20070601
  12. TYLENOL [Concomitant]
     Active Substance: ACETAMINOPHEN
     Dosage: TAKE 2 TABLETS BY MOUTH EVERY 6 HOURS AS NEEDED.
     Route: 048
     Dates: start: 20170627
  13. AMIODARONE [Concomitant]
     Active Substance: AMIODARONE
     Route: 048
     Dates: start: 20070601
  14. LOSARTAN. [Concomitant]
     Active Substance: LOSARTAN
     Route: 048
     Dates: start: 20070601
  15. PROVENTIL HFA [Concomitant]
     Active Substance: ALBUTEROL SULFATE
     Dosage: PER ACTUATION INHALER, INHALE 1-2 PUFFS AS INSTRUCTED FOUR TIMES DAILY AS NEEDED
     Route: 055
     Dates: start: 20170504
  16. LIPITOR [Concomitant]
     Active Substance: ATORVASTATIN CALCIUM
     Route: 048
     Dates: start: 20160623
  17. ATEZOLIZUMAB. [Suspect]
     Active Substance: ATEZOLIZUMAB
     Indication: NON-SMALL CELL LUNG CANCER
     Dosage: CYCLE 2 ON 16/JUN/2017?LIQUID
     Route: 042
  18. ZOFRAN [Concomitant]
     Active Substance: ONDANSETRON HYDROCHLORIDE
     Indication: NAUSEA
     Dosage: TAKE ONE TABLET BY MOUTH EVERY 8 HOURS AS NEEDED
     Route: 048
     Dates: start: 20170607
  19. VENTOLIN HFA [Concomitant]
     Active Substance: ALBUTEROL SULFATE
     Dosage: 90 MCG ACTUATION INHALER, INHALE 1-2 PUFFS AS INSTRUCTED FOUR TIMES DAILY AS NEEDED
     Route: 055
     Dates: start: 20170504
  20. ANORO ELLIPTA [Concomitant]
     Active Substance: UMECLIDINIUM BROMIDE\VILANTEROL TRIFENATATE
     Dosage: 62.5-25 MCG/ACTUATION INHALER, 1 INHALATION AS INSTRUCTED DAILY
     Route: 055
     Dates: start: 20170504

REACTIONS (3)
  - Aortic valve stenosis [Recovered/Resolved]
  - Infusion related reaction [Recovered/Resolved]
  - Embolism [Recovered/Resolved]

NARRATIVE: CASE EVENT DATE: 20170616
